FAERS Safety Report 12224365 (Version 1)
Quarter: 2016Q1

REPORT INFORMATION
  Report Type: Spontaneous
  Country: US (occurrence: US)
  Receive Date: 20160331
  Receipt Date: 20160331
  Transmission Date: 20160526
  Serious: No
  Sender: FDA-Public Use
  Company Number: US-009507513-1603USA011645

PATIENT
  Age: 20 Year
  Sex: Female

DRUGS (1)
  1. NEXPLANON [Suspect]
     Active Substance: ETONOGESTREL
     Indication: CONTRACEPTION
     Dosage: 1 ROD
     Route: 058

REACTIONS (6)
  - Tinnitus [Unknown]
  - Chest pain [Unknown]
  - Device difficult to use [Recovered/Resolved]
  - Circumstance or information capable of leading to device use error [Unknown]
  - Palpitations [Unknown]
  - Complication of device removal [Recovered/Resolved]
